FAERS Safety Report 8972868 (Version 3)
Quarter: 2013Q2

REPORT INFORMATION
  Report Type: Spontaneous
  Country: BE (occurrence: BE)
  Receive Date: 20121219
  Receipt Date: 20130410
  Transmission Date: 20140414
  Serious: Yes (Hospitalization, Other)
  Sender: FDA-Public Use
  Company Number: BE-BIOGENIDEC-2012BI059738

PATIENT
  Sex: Female

DRUGS (5)
  1. AVONEX [Suspect]
     Indication: MULTIPLE SCLEROSIS
     Route: 030
  2. PURINETOL [Concomitant]
  3. L-THYRONE [Concomitant]
  4. MEDROL [Concomitant]
  5. LORAZEPAM [Concomitant]

REACTIONS (3)
  - Hepatic neoplasm [Unknown]
  - Hepatic cyst [Unknown]
  - Biliary cyst [Unknown]
